FAERS Safety Report 10618340 (Version 1)
Quarter: 2014Q4

REPORT INFORMATION
  Report Type: Spontaneous
  Country: US (occurrence: US)
  Receive Date: 20141202
  Receipt Date: 20141202
  Transmission Date: 20150529
  Serious: No
  Sender: FDA-Public Use
  Company Number: US-ASTRAZENECA-2014SE81924

PATIENT
  Age: 393 Month
  Sex: Female
  Weight: 136.1 kg

DRUGS (4)
  1. ALBUTEROL. [Concomitant]
     Active Substance: ALBUTEROL
     Indication: ASTHMA
     Route: 055
     Dates: start: 1999
  2. SYMBICORT [Suspect]
     Active Substance: BUDESONIDE\FORMOTEROL FUMARATE DIHYDRATE
     Indication: ASTHMA
     Dosage: 160/4.5 MCG 2 PUFFS BID
     Route: 055
     Dates: start: 20141015
  3. SINGULAIR [Concomitant]
     Active Substance: MONTELUKAST SODIUM
     Indication: MULTIPLE ALLERGIES
  4. SINGULAIR [Concomitant]
     Active Substance: MONTELUKAST SODIUM
     Indication: ASTHMA

REACTIONS (6)
  - Asthma [Unknown]
  - Wheezing [Unknown]
  - Intentional product misuse [Unknown]
  - Chest discomfort [Unknown]
  - Cough [Unknown]
  - Multiple allergies [Unknown]

NARRATIVE: CASE EVENT DATE: 201410
